FAERS Safety Report 5487415-8 (Version None)
Quarter: 2007Q4

REPORT INFORMATION
  Report Type: 
  Country: None (occurrence: None)
  Receive Date: 20071016
  Receipt Date: 20071010
  Transmission Date: 20080405
  Serious: Yes (Disabling, Other)
  Sender: FDA-Public Use
  Company Number: JP-PFIZER INC-2007085145

PATIENT
  Age: 80 Year
  Sex: Male

DRUGS (2)
  1. DETRUSITOL [Suspect]
     Indication: HYPERTONIC BLADDER
     Dosage: DAILY DOSE:4MG
     Route: 048
     Dates: start: 20070928, end: 20071005
  2. VESICARE [Concomitant]
     Dosage: DAILY DOSE:5MG
     Route: 048
     Dates: start: 20070901, end: 20070927

REACTIONS (2)
  - BENIGN PROSTATIC HYPERPLASIA [None]
  - URINARY RETENTION [None]
